FAERS Safety Report 8509413-X (Version None)
Quarter: 2012Q3

REPORT INFORMATION
  Report Type: 
  Country: None (occurrence: None)
  Receive Date: 20120713
  Receipt Date: 20091207
  Transmission Date: 20120928
  Serious: Yes (Hospitalization)
  Sender: FDA-Public Use
  Company Number: ZA-ROCHE-1087192

PATIENT
  Sex: Male

DRUGS (3)
  1. CELLCEPT [Suspect]
     Indication: RENAL TRANSPLANT
     Route: 048
  2. PREDNISONE [Concomitant]
  3. PROGRAF [Concomitant]

REACTIONS (3)
  - ABDOMINAL DISTENSION [None]
  - KIDNEY TRANSPLANT REJECTION [None]
  - INFECTION [None]
